FAERS Safety Report 9798843 (Version 1)
Quarter: 2014Q1

REPORT INFORMATION
  Report Type: Spontaneous
  Country: US (occurrence: US)
  Receive Date: 20140106
  Receipt Date: 20140106
  Transmission Date: 20141002
  Serious: No
  Sender: FDA-Public Use
  Company Number: US-GILEAD-2010-0034449

PATIENT
  Age: 68 Year
  Sex: Female

DRUGS (2)
  1. LETAIRIS [Suspect]
     Indication: PULMONARY ARTERIAL HYPERTENSION
     Route: 048
     Dates: start: 20080724
  2. VENTAVIS [Concomitant]

REACTIONS (3)
  - Laceration [Unknown]
  - Fall [Unknown]
  - Neuropathy peripheral [Unknown]
